FAERS Safety Report 4672922-8 (Version None)
Quarter: 2005Q2

REPORT INFORMATION
  Report Type: 
  Country: None (occurrence: None)
  Receive Date: 20050524
  Receipt Date: 20050510
  Transmission Date: 20051028
  Serious: Yes (Other)
  Sender: FDA-Public Use
  Company Number: 2005074529

PATIENT
  Sex: Male

DRUGS (2)
  1. SUDAFED 12 HOUR [Suspect]
     Indication: NASAL CONGESTION
     Dosage: 2 TAB ONCE ORAL
     Route: 048
     Dates: start: 20050510, end: 20050510
  2. ETHANOL (ETHANOL) [Suspect]
     Dosage: ^COUPLE BEERS^

REACTIONS (3)
  - HALLUCINATION [None]
  - POOR QUALITY DRUG ADMINISTERED [None]
  - SLEEP DISORDER [None]
